FAERS Safety Report 7424003-8 (Version None)
Quarter: 2011Q2

REPORT INFORMATION
  Report Type: 
  Country: None (occurrence: None)
  Receive Date: 20110419
  Receipt Date: 20110323
  Transmission Date: 20111010
  Serious: No
  Sender: FDA-Public Use
  Company Number: US-JNJFOC-20110307109

PATIENT
  Sex: Female

DRUGS (10)
  1. DURAGESIC [Suspect]
     Dosage: 100 UG/HR   50 UG/HR = 150 UG/HR PATCHES
     Route: 062
  2. PERCOCET [Concomitant]
     Indication: PAIN
     Dosage: 100 UG/HR + 50 UG/HR = 150 UG/HR PATCHES
     Route: 048
  3. DURAGESIC [Suspect]
     Dosage: 100 UG/HR +  50 UG/HR = 150 UG/HR PATCHES
     Route: 062
  4. FENTANYL-100 [Suspect]
     Indication: PAIN
     Route: 062
  5. FENTANYL-100 [Suspect]
     Indication: PAIN
     Dosage: 100 UG/HR + 50 UG/HR = 150 UG/HR PATCHES
     Route: 062
  6. FENTANYL [Suspect]
     Indication: INTERVERTEBRAL DISC DEGENERATION
     Dosage: 100MCG+50MCG
     Route: 062
  7. DURAGESIC [Suspect]
     Indication: PAIN
     Route: 062
  8. UNKNOWN MEDICATION [Concomitant]
     Dosage: 100 UG/HR + 50 UG/HR = 150 UG/HR PATCHES
  9. FENTANYL-100 [Suspect]
     Route: 062
  10. DURAGESIC [Suspect]
     Route: 062

REACTIONS (7)
  - APPLICATION SITE RASH [None]
  - MALAISE [None]
  - TREATMENT NONCOMPLIANCE [None]
  - PAIN [None]
  - ADVERSE DRUG REACTION [None]
  - WITHDRAWAL SYNDROME [None]
  - HYPERSENSITIVITY [None]
